FAERS Safety Report 4918420-5 (Version None)
Quarter: 2006Q1

REPORT INFORMATION
  Report Type: 
  Country: None (occurrence: None)
  Receive Date: 20060222
  Receipt Date: 20000218
  Transmission Date: 20060701
  Serious: Yes (Life-Threatening, Other)
  Sender: FDA-Public Use
  Company Number: CA-BOEHRINGER INGELHEIM PHARMACEUTICALS, INC.-2000-DE-U0038

PATIENT
  Sex: Female
  Weight: 63.1 kg

DRUGS (2)
  1. PRAMIPEXOLE DIHYDROCHLORIDE [Suspect]
     Route: 048
     Dates: start: 19970117, end: 20000117
  2. NONE REPORTED [Concomitant]

REACTIONS (1)
  - SUDDEN ONSET OF SLEEP [None]
